FAERS Safety Report 4560808-9 (Version None)
Quarter: 2005Q1

REPORT INFORMATION
  Report Type: 
  Country: None (occurrence: None)
  Receive Date: 20050124
  Receipt Date: 20050124
  Transmission Date: 20050727
  Serious: Yes (Other)
  Sender: FDA-Public Use
  Company Number: None

PATIENT
  Sex: Female
  Weight: 18.1439 kg

DRUGS (1)
  1. MOTRIN [Suspect]
     Indication: PYREXIA
     Dosage: 100MG PO (1)
     Route: 048
     Dates: start: 20041121, end: 20041121

REACTIONS (3)
  - CRYING [None]
  - EMOTIONAL DISTRESS [None]
  - PHARMACEUTICAL PRODUCT COMPLAINT [None]
